FAERS Safety Report 5568040-7 (Version None)
Quarter: 2007Q4

REPORT INFORMATION
  Report Type: 
  Country: None (occurrence: None)
  Receive Date: 20071220
  Receipt Date: 20071214
  Transmission Date: 20080405
  Serious: Yes (Other)
  Sender: FDA-Public Use
  Company Number: IE-JNJFOC-20071109335

PATIENT
  Age: 3 Decade
  Sex: Female
  Weight: 71.7 kg

DRUGS (4)
  1. RISPERDAL [Suspect]
     Indication: ABNORMAL BEHAVIOUR
     Route: 048
  2. ANAFRANIL [Concomitant]
     Indication: DEPRESSION
     Route: 065
  3. TEGRETOL [Concomitant]
     Route: 065
  4. DIANETTE [Concomitant]
     Indication: MENSTRUATION IRREGULAR
     Route: 048

REACTIONS (2)
  - BLOOD PROLACTIN INCREASED [None]
  - MASTITIS [None]
